FAERS Safety Report 21918185 (Version 2)
Quarter: 2023Q2

REPORT INFORMATION
  Report Type: Spontaneous
  Country: US (occurrence: US)
  Receive Date: 20230127
  Receipt Date: 20230628
  Transmission Date: 20230721
  Serious: Yes (Other)
  Sender: FDA-Public Use
  Company Number: US-JNJFOC-20230149488

PATIENT
  Age: 9 Year
  Sex: Male

DRUGS (6)
  1. TYLENOL REGULAR STRENGTH [Suspect]
     Active Substance: ACETAMINOPHEN
     Indication: Headache
     Dosage: MOTHER TOOK 325 MG TABLET, FROM PACKETS WITH 2 PILLS OR MEDIUM BOTTLES, IN ALL TRIMESTER 1-2 TIMES P
     Route: 064
     Dates: start: 201012, end: 201110
  2. TYLENOL REGULAR STRENGTH [Suspect]
     Active Substance: ACETAMINOPHEN
     Indication: Back pain
  3. TYLENOL EXTRA STRENGTH [Suspect]
     Active Substance: ACETAMINOPHEN
     Indication: Headache
     Dosage: MOTHER TOOK 500 MG TABLET, FROM PACKETS WITH 2 PILLS OR MEDIUM BOTTLES, IN ALL TRIMESTER 1-2 TIMES P
     Route: 064
     Dates: start: 201012, end: 201110
  4. TYLENOL EXTRA STRENGTH [Suspect]
     Active Substance: ACETAMINOPHEN
     Indication: Back pain
  5. TYLENOL EXTRA STRENGTH [Suspect]
     Active Substance: ACETAMINOPHEN
     Indication: Product used for unknown indication
     Dosage: GELS CAPS 500 MG, MEDIUM SIZE BOTTLE IN ALL TRIMESTER
     Route: 064
     Dates: start: 201012, end: 201110
  6. ACETAMINOPHEN [Suspect]
     Active Substance: ACETAMINOPHEN
     Indication: Product used for unknown indication
     Dosage: 325 MG FROM PACKETS WITH 2 PILLS, OR MEDIUM BOTTLES IN ALL TRIMESTER
     Route: 064
     Dates: start: 201012, end: 201110

REACTIONS (2)
  - Autism spectrum disorder [Unknown]
  - Foetal exposure during pregnancy [Unknown]

NARRATIVE: CASE EVENT DATE: 20210414
